FAERS Safety Report 6032246-3 (Version None)
Quarter: 2009Q1

REPORT INFORMATION
  Report Type: 
  Country: None (occurrence: None)
  Receive Date: 20090108
  Receipt Date: 20081229
  Transmission Date: 20090719
  Serious: No
  Sender: FDA-Public Use
  Company Number: US-B.I. PHARMACEUTICALS,INC./RIDGEFIELD-2008-BP-19191BP

PATIENT
  Sex: Female

DRUGS (4)
  1. COMBIVENT [Suspect]
     Indication: ASTHMA
     Dosage: 8PUF
     Route: 055
     Dates: start: 19970701
  2. ADVAIR DISKUS 250/50 [Concomitant]
     Indication: ASTHMA
  3. FUROSEMIDE [Concomitant]
     Indication: OEDEMA
  4. METFORMIN HCL [Concomitant]
     Indication: TYPE 2 DIABETES MELLITUS

REACTIONS (4)
  - CHEST PAIN [None]
  - INCREASED UPPER AIRWAY SECRETION [None]
  - SPUTUM RETENTION [None]
  - TYPE 2 DIABETES MELLITUS [None]
